FAERS Safety Report 24848438 (Version 3)
Quarter: 2025Q1

REPORT INFORMATION
  Report Type: Report from Study
  Country: CA (occurrence: CA)
  Receive Date: 20250116
  Receipt Date: 20250308
  Transmission Date: 20250409
  Serious: Yes (Other)
  Sender: TAKEDA
  Company Number: CA-TAKEDA-2025TUS001863

PATIENT
  Age: 11 Year
  Sex: Male

DRUGS (3)
  1. VEDOLIZUMAB [Suspect]
     Active Substance: VEDOLIZUMAB
     Indication: Crohn^s disease
  2. VITAMIN D [Concomitant]
     Active Substance: VITAMIN D NOS
     Indication: Crohn^s disease
     Dosage: 1000 MILLIGRAM, QD
  3. PREDNISONE [Concomitant]
     Active Substance: PREDNISONE
     Indication: Crohn^s disease
     Dosage: UNK, UNK, QD

REACTIONS (15)
  - Crohn^s disease [Recovering/Resolving]
  - Malaise [Unknown]
  - Off label use [Unknown]
  - Impaired work ability [Unknown]
  - Social problem [Unknown]
  - Pain [Unknown]
  - Eye pain [Unknown]
  - Gait disturbance [Recovering/Resolving]
  - Loss of personal independence in daily activities [Unknown]
  - Remission not achieved [Unknown]
  - Blood albumin decreased [Unknown]
  - Asthenia [Unknown]
  - Abdominal pain [Unknown]
  - Arthralgia [Unknown]
  - Fatigue [Unknown]

NARRATIVE: CASE EVENT DATE: 20241119
